FAERS Safety Report 18475282 (Version 4)
Quarter: 2025Q1

REPORT INFORMATION
  Report Type: Report from Study
  Country: CA (occurrence: CA)
  Receive Date: 20201107
  Receipt Date: 20250314
  Transmission Date: 20250409
  Serious: Yes (Other)
  Sender: TAKEDA
  Company Number: CA-TAKEDA-2020TUS047168

PATIENT
  Age: 53 Year
  Sex: Female

DRUGS (13)
  1. VEDOLIZUMAB [Suspect]
     Active Substance: VEDOLIZUMAB
     Indication: Colitis ulcerative
  2. VEDOLIZUMAB [Suspect]
     Active Substance: VEDOLIZUMAB
  3. VEDOLIZUMAB [Suspect]
     Active Substance: VEDOLIZUMAB
  4. VEDOLIZUMAB [Suspect]
     Active Substance: VEDOLIZUMAB
     Indication: Colitis ulcerative
     Dosage: 108 MILLIGRAM, Q2WEEKS
     Dates: start: 20240908
  5. PAXLOVID [Suspect]
     Active Substance: NIRMATRELVIR\RITONAVIR
     Indication: Product used for unknown indication
  6. ASACOL [Concomitant]
     Active Substance: MESALAMINE
  7. PENTASA [Concomitant]
     Active Substance: MESALAMINE
  8. ATORVASTATIN [Concomitant]
     Active Substance: ATORVASTATIN
  9. METOPROLOL [Concomitant]
     Active Substance: METOPROLOL
  10. AMLODIPINE [Concomitant]
     Active Substance: AMLODIPINE BESYLATE
  11. ASPIRIN [Concomitant]
     Active Substance: ASPIRIN
  12. FERROUS SULFATE [Concomitant]
     Active Substance: FERROUS SULFATE
  13. VITAMIN D NOS [Concomitant]
     Active Substance: CHOLECALCIFEROL\ERGOCALCIFEROL

REACTIONS (5)
  - Anal haemorrhage [Unknown]
  - COVID-19 [Unknown]
  - Diarrhoea [Unknown]
  - Injection site reaction [Unknown]
  - Fatigue [Unknown]

NARRATIVE: CASE EVENT DATE: 20230808
